FAERS Safety Report 8157897-1 (Version None)
Quarter: 2012Q1

REPORT INFORMATION
  Report Type: 
  Country: None (occurrence: None)
  Receive Date: 20120222
  Receipt Date: 20120216
  Transmission Date: 20120608
  Serious: Yes (Hospitalization)
  Sender: FDA-Public Use
  Company Number: PHHY2012MX013852

PATIENT
  Sex: Female

DRUGS (2)
  1. ERGOCALCIFEROL [Concomitant]
     Dosage: ONE TABLET PER DAY
  2. ZOLEDRONOC ACID [Suspect]
     Indication: OSTEOPOROSIS
     Dosage: 5 MG, YEARLY
     Route: 042
     Dates: start: 20090901

REACTIONS (1)
  - FALL [None]
